FAERS Safety Report 6583931-6 (Version None)
Quarter: 2010Q1

REPORT INFORMATION
  Report Type: 
  Country: None (occurrence: None)
  Receive Date: 20100216
  Receipt Date: 20091207
  Transmission Date: 20100710
  Serious: No
  Sender: FDA-Public Use
  Company Number: US-ABBOTT-09P-163-0612842-00

PATIENT
  Sex: Male
  Weight: 88.53 kg

DRUGS (4)
  1. SIMCOR [Suspect]
     Indication: HYPERLIPIDAEMIA
     Dates: start: 20091101
  2. PENICILLIN [Concomitant]
     Indication: TOOTH INFECTION
  3. MARIJUANA [Concomitant]
     Indication: RHEUMATOID ARTHRITIS
  4. ZANAFLEX [Concomitant]
     Indication: RHEUMATOID ARTHRITIS

REACTIONS (2)
  - FEELING HOT [None]
  - PARAESTHESIA [None]
